FAERS Safety Report 6824760-5 (Version None)
Quarter: 2010Q3

REPORT INFORMATION
  Report Type: 
  Country: None (occurrence: None)
  Receive Date: 20100708
  Receipt Date: 20061227
  Transmission Date: 20110219
  Serious: Yes (Other)
  Sender: FDA-Public Use
  Company Number: US-PFIZER INC-2006142139

PATIENT
  Sex: Female
  Weight: 74.39 kg

DRUGS (5)
  1. CHANTIX [Suspect]
     Indication: SMOKING CESSATION THERAPY
     Dates: start: 20060101
  2. SEROQUEL [Concomitant]
  3. TOPAMAX [Concomitant]
  4. ALLEGRA D 24 HOUR [Concomitant]
  5. NASONEX [Concomitant]

REACTIONS (5)
  - MALAISE [None]
  - MOOD SWINGS [None]
  - NAUSEA [None]
  - SOMNOLENCE [None]
  - VISUAL IMPAIRMENT [None]
